FAERS Safety Report 11185190 (Version 2)
Quarter: 2015Q2

REPORT INFORMATION
  Report Type: Spontaneous
  Country: US (occurrence: US)
  Receive Date: 20150612
  Receipt Date: 20150629
  Transmission Date: 20150821
  Serious: Yes (Hospitalization, Other)
  Sender: FDA-Public Use
  Company Number: US-UCBSA-2015018681

PATIENT
  Sex: Female
  Weight: 74.8 kg

DRUGS (5)
  1. PENTASA [Concomitant]
     Active Substance: MESALAMINE
     Indication: CROHN^S DISEASE
     Dosage: 1000 MG, 2X/DAY (BID)
     Route: 048
  2. CIMZIA [Suspect]
     Active Substance: CERTOLIZUMAB PEGOL
     Indication: CROHN^S DISEASE
     Dosage: 400 MG, MONTHLY (QM)
     Route: 058
     Dates: end: 2013
  3. CIMZIA [Suspect]
     Active Substance: CERTOLIZUMAB PEGOL
     Dosage: 400 MG, MONTHLY (QM)
     Route: 058
  4. LISINOPRIL. [Concomitant]
     Active Substance: LISINOPRIL
     Indication: BLOOD PRESSURE
     Dosage: 20 MG, ONCE DAILY (QD)
     Route: 048
     Dates: start: 2014
  5. METOPROLOL [Concomitant]
     Active Substance: METOPROLOL
     Indication: HEART RATE
     Dosage: 25 MG, ONCE DAILY (QD)
     Route: 048

REACTIONS (6)
  - Sepsis [Recovered/Resolved]
  - Escherichia infection [Recovered/Resolved]
  - Crohn^s disease [Recovered/Resolved]
  - Pain [Recovered/Resolved]
  - Psoriasis [Not Recovered/Not Resolved]
  - Hospitalisation [Recovered/Resolved]

NARRATIVE: CASE EVENT DATE: 2013
